FAERS Safety Report 4622455-X (Version None)
Quarter: 2005Q1

REPORT INFORMATION
  Report Type: 
  Country: None (occurrence: None)
  Receive Date: 20050325
  Receipt Date: 20050325
  Transmission Date: 20050727
  Serious: No
  Sender: FDA-Public Use
  Company Number: None

PATIENT

DRUGS (2)
  1. VERSED [Suspect]
     Dosage: IVP -2 MGS
     Route: 042
     Dates: start: 20050314
  2. VERSED [Suspect]
     Dosage: IVP -2 MGS
     Route: 042
     Dates: start: 20050314

REACTIONS (1)
  - PHARMACEUTICAL PRODUCT COMPLAINT [None]
